FAERS Safety Report 23804521 (Version 1)
Quarter: 2024Q2

REPORT INFORMATION
  Report Type: Spontaneous
  Country: US (occurrence: None)
  Receive Date: 20240501
  Receipt Date: 20240501
  Transmission Date: 20240715
  Serious: Yes (Hospitalization)
  Sender: FDA-Public Use
  Company Number: None

PATIENT
  Sex: Female

DRUGS (1)
  1. ENBREL [Suspect]
     Active Substance: BENZYL ALCOHOL\ETANERCEPT
     Indication: Osteoarthritis
     Dosage: 50MG EVERY 7 DAYS UNDER SKIN
     Route: 058
     Dates: start: 202306

REACTIONS (1)
  - Chronic obstructive pulmonary disease [None]
